FAERS Safety Report 9759657 (Version 1)
Quarter: 2013Q4

REPORT INFORMATION
  Report Type: Report from Study
  Country: CA (occurrence: CA)
  Receive Date: 20131216
  Receipt Date: 20131216
  Transmission Date: 20140711
  Serious: Yes (Other)
  Sender: FDA-Public Use
  Company Number: CA-JNJFOC-20131206196

PATIENT
  Age: 65 Year
  Sex: Male
  Weight: 89 kg

DRUGS (10)
  1. REMICADE [Suspect]
     Indication: COLITIS ULCERATIVE
     Dosage: FREQUENCY: AT WEEK 0, 2, 6 AND THEN EVERY 8 WEEKS
     Route: 042
     Dates: start: 20131126
  2. RAMIPRIL [Concomitant]
     Route: 065
  3. FERAMAX [Concomitant]
     Route: 065
  4. SALOFALK [Concomitant]
     Dosage: FREQUENCY: NIGHTLY
     Route: 054
  5. SALOFALK [Concomitant]
     Route: 065
  6. TAMSULOSINE HCL SANDOZ [Concomitant]
     Route: 065
  7. ATORVASTATIN [Concomitant]
     Route: 065
  8. LEVITRA [Concomitant]
     Route: 065
  9. NOVOLIN NPH [Concomitant]
     Route: 065
  10. NOVO RAPID [Concomitant]
     Dosage: 3ML PEN AM/SUPPER
     Route: 065

REACTIONS (1)
  - Heart rate irregular [Not Recovered/Not Resolved]
